FAERS Safety Report 19484004 (Version 1)
Quarter: 2021Q3

REPORT INFORMATION
  Report Type: Spontaneous
  Country: GB (occurrence: GB)
  Receive Date: 20210701
  Receipt Date: 20210701
  Transmission Date: 20211014
  Serious: Yes (Other)
  Sender: FDA-Public Use
  Company Number: GB-BAYER-2021-163485

PATIENT
  Age: 32 Year
  Sex: Female
  Weight: 75 kg

DRUGS (1)
  1. MIRENA [Suspect]
     Active Substance: LEVONORGESTREL
     Indication: CONTRACEPTION
     Dosage: 20 ?G PER DAY, CONTINUOUSLY
     Route: 015
     Dates: start: 20210129, end: 20210518

REACTIONS (9)
  - Weight increased [None]
  - Device placement issue [None]
  - Constipation [None]
  - Depressed mood [None]
  - Pelvic pain [Unknown]
  - Dysmenorrhoea [Recovered/Resolved]
  - Abdominal distension [None]
  - Acne [None]
  - Weight loss poor [None]

NARRATIVE: CASE EVENT DATE: 20210129
